FAERS Safety Report 15451319 (Version 4)
Quarter: 2020Q1

REPORT INFORMATION
  Report Type: Spontaneous
  Country: US (occurrence: US)
  Receive Date: 20181001
  Receipt Date: 20200305
  Transmission Date: 20200409
  Serious: No
  Sender: FDA-Public Use
  Company Number: US-STRONGBRIDGE BIOPHARMA-2018-STR-000315

PATIENT
  Age: 51 Year
  Sex: Male

DRUGS (4)
  1. KEVEYIS [Suspect]
     Active Substance: DICHLORPHENAMIDE
     Indication: FAMILIAL PERIODIC PARALYSIS
     Dosage: 1 TABLET QAM AND 2 TABLET QPM
     Route: 048
     Dates: start: 20180517
  2. KEVEYIS [Suspect]
     Active Substance: DICHLORPHENAMIDE
     Dosage: 50 MG, BID
     Route: 048
  3. KEVEYIS [Suspect]
     Active Substance: DICHLORPHENAMIDE
     Dosage: 1.5 TABLETS TWICE DAILY
     Route: 048
  4. KEVEYIS [Suspect]
     Active Substance: DICHLORPHENAMIDE
     Dosage: 150 MG, QD
     Route: 048

REACTIONS (8)
  - Paraesthesia [Not Recovered/Not Resolved]
  - Hypoaesthesia [Not Recovered/Not Resolved]
  - Intentional product misuse [Not Recovered/Not Resolved]
  - Therapeutic product effect incomplete [Not Recovered/Not Resolved]
  - Nocturia [Not Recovered/Not Resolved]
  - Amnesia [Unknown]
  - Paraesthesia [Recovered/Resolved]
  - Paraesthesia [Unknown]

NARRATIVE: CASE EVENT DATE: 20180919
